FAERS Safety Report 7357213-9 (Version None)
Quarter: 2011Q1

REPORT INFORMATION
  Report Type: 
  Country: None (occurrence: None)
  Receive Date: 20110308
  Receipt Date: 20110223
  Transmission Date: 20110831
  Serious: Yes (Other)
  Sender: FDA-Public Use
  Company Number: TPH-00307

PATIENT
  Sex: Male

DRUGS (1)
  1. TRIQUILAR (ETHINYLESTRADIOL + LEVONORGESTREL) COATED TABLET [Suspect]
     Dosage: TRANSMAMMARY
     Route: 063
     Dates: start: 20101001, end: 20101201

REACTIONS (1)
  - CONSTIPATION [None]
